FAERS Safety Report 7209145-4 (Version None)
Quarter: 2011Q1

REPORT INFORMATION
  Report Type: 
  Country: None (occurrence: None)
  Receive Date: 20110104
  Receipt Date: 20101228
  Transmission Date: 20110831
  Serious: Yes (Hospitalization)
  Sender: FDA-Public Use
  Company Number: US-TEVA-261171USA

PATIENT
  Sex: Female

DRUGS (2)
  1. LITHIUM [Suspect]
  2. CLOZAPINE [Suspect]
     Route: 048
     Dates: end: 20101130

REACTIONS (2)
  - TOXICITY TO VARIOUS AGENTS [None]
  - WHITE BLOOD CELL COUNT DECREASED [None]
